FAERS Safety Report 8547656-X (Version None)
Quarter: 2012Q3

REPORT INFORMATION
  Report Type: 
  Country: None (occurrence: None)
  Receive Date: 20120727
  Receipt Date: 20111028
  Transmission Date: 20120928
  Serious: Yes (Hospitalization)
  Sender: FDA-Public Use
  Company Number: US-ASTRAZENECA-2011SE65426

PATIENT
  Age: 24 Year
  Sex: Female

DRUGS (2)
  1. OTHER ANTIPSYCHOTICS [Concomitant]
  2. SEROQUEL XR [Suspect]
     Indication: BIPOLAR DISORDER
     Route: 048

REACTIONS (2)
  - DEPRESSION [None]
  - MATERNAL EXPOSURE DURING PREGNANCY [None]
